FAERS Safety Report 6549118-8 (Version None)
Quarter: 2010Q1

REPORT INFORMATION
  Report Type: 
  Country: None (occurrence: None)
  Receive Date: 20100125
  Receipt Date: 20100114
  Transmission Date: 20100710
  Serious: Yes (Other)
  Sender: FDA-Public Use
  Company Number: US-AMGEN-QUU385919

PATIENT
  Age: 45 Year
  Sex: Female

DRUGS (15)
  1. ARANESP [Suspect]
     Indication: DIALYSIS
  2. TRILEPTAL [Concomitant]
  3. ALBUTEROL [Concomitant]
  4. NIFEDIPINE [Concomitant]
  5. TYLENOL (CAPLET) [Concomitant]
  6. CROMOLYN SODIUM [Concomitant]
  7. TRIAMCINOLONE [Concomitant]
  8. NEPHROCAPS [Concomitant]
  9. FOLIC ACID [Concomitant]
  10. HUMALOG [Concomitant]
  11. AMITRIPTYLINE HCL [Concomitant]
  12. COLACE [Concomitant]
  13. SEVELAMER [Concomitant]
  14. LACTULOSE [Concomitant]
  15. FLOVENT [Concomitant]

REACTIONS (1)
  - HAEMOGLOBIN DECREASED [None]
